FAERS Safety Report 20792039 (Version 2)
Quarter: 2022Q2

REPORT INFORMATION
  Report Type: Spontaneous
  Country: US (occurrence: US)
  Receive Date: 20220505
  Receipt Date: 20220519
  Transmission Date: 20220721
  Serious: Yes (Hospitalization)
  Sender: FDA-Public Use
  Company Number: US-TEVA-2022-US-2033205

PATIENT
  Age: 16 Year
  Sex: Male

DRUGS (8)
  1. VINCRISTINE [Suspect]
     Active Substance: VINCRISTINE
     Indication: B precursor type acute leukaemia
     Route: 042
  2. MERCAPTOPURINE [Suspect]
     Active Substance: MERCAPTOPURINE
     Indication: B precursor type acute leukaemia
     Route: 065
  3. MERCAPTOPURINE [Suspect]
     Active Substance: MERCAPTOPURINE
     Indication: B precursor type acute leukaemia
     Dosage: 150 MILLIGRAM DAILY; DOSAGE INCREASED 25%
     Route: 065
     Dates: start: 202009
  4. METHOTREXATE [Concomitant]
     Active Substance: METHOTREXATE
     Indication: B precursor type acute leukaemia
     Route: 065
  5. METHOTREXATE [Concomitant]
     Active Substance: METHOTREXATE
     Indication: B precursor type acute leukaemia
     Route: 037
  6. PREDNISONE [Concomitant]
     Active Substance: PREDNISONE
     Indication: B precursor type acute leukaemia
     Dosage: 35 MILLIGRAM DAILY; EVERY MORNING
     Route: 048
  7. PREDNISONE [Concomitant]
     Active Substance: PREDNISONE
     Dosage: 30 MILLIGRAM DAILY; EVERY EVENING
     Route: 048
  8. SULFAMETHOXAZOLE\TRIMETHOPRIM [Concomitant]
     Active Substance: SULFAMETHOXAZOLE\TRIMETHOPRIM
     Indication: Product used for unknown indication
     Route: 065

REACTIONS (2)
  - Drug-induced liver injury [Recovering/Resolving]
  - Hyperbilirubinaemia [Recovering/Resolving]
